FAERS Safety Report 13082184 (Version 4)
Quarter: 2018Q3

REPORT INFORMATION
  Report Type: Spontaneous
  Country: DE (occurrence: DE)
  Receive Date: 20170103
  Receipt Date: 20180815
  Transmission Date: 20181010
  Serious: Yes (Death)
  Sender: FDA-Public Use
  Company Number: DE-TEVA-723615GER

PATIENT
  Age: 75 Year
  Sex: Male

DRUGS (8)
  1. OLANZAPIN [Suspect]
     Active Substance: OLANZAPINE
     Dosage: 20 MILLIGRAM DAILY;
     Route: 065
     Dates: start: 20160723, end: 20160915
  2. OLANZAPIN [Suspect]
     Active Substance: OLANZAPINE
     Dosage: 10 MILLIGRAM DAILY;
     Dates: start: 20160401, end: 20160528
  3. HALDOL [Suspect]
     Active Substance: HALOPERIDOL
     Dosage: 16 MILLIGRAM DAILY;
     Dates: start: 20160701, end: 20160723
  4. PIPAMPERONE [Concomitant]
     Active Substance: PIPAMPERONE
     Dosage: 20?20?40
  5. LORAZEPAM. [Concomitant]
     Active Substance: LORAZEPAM
     Dates: start: 201603, end: 20160414
  6. RISPERIDON [Concomitant]
     Active Substance: RISPERIDONE
     Dosage: 20?20?40
  7. GLIANIMON [Concomitant]
     Active Substance: BENPERIDOL
     Dates: start: 20160301, end: 20160414
  8. QUETIAPIN [Concomitant]
     Active Substance: QUETIAPINE

REACTIONS (14)
  - Cough [Fatal]
  - Neuroleptic malignant syndrome [Fatal]
  - Bradyphrenia [Fatal]
  - General physical health deterioration [Fatal]
  - Gait disturbance [Fatal]
  - Pneumonia aspiration [Fatal]
  - Cerebellar syndrome [Fatal]
  - Dry mouth [Fatal]
  - Dysarthria [Fatal]
  - Dysphagia [Fatal]
  - Muscle rigidity [Fatal]
  - Sepsis [Fatal]
  - Body temperature increased [Fatal]
  - Eye movement disorder [Fatal]

NARRATIVE: CASE EVENT DATE: 20160414
